FAERS Safety Report 5642550-6 (Version None)
Quarter: 2008Q1

REPORT INFORMATION
  Report Type: 
  Country: None (occurrence: None)
  Receive Date: 20080228
  Receipt Date: 20080221
  Transmission Date: 20080703
  Serious: Yes (Hospitalization)
  Sender: FDA-Public Use
  Company Number: DK-WYE-G01107808

PATIENT
  Sex: Male
  Weight: 120 kg

DRUGS (4)
  1. EFFEXOR [Suspect]
     Indication: DEPRESSIVE SYMPTOM
     Dosage: UNKNOWN
     Route: 048
  2. ELTROXIN [Suspect]
  3. SEROQUEL [Suspect]
  4. CISORDINOL [Suspect]

REACTIONS (3)
  - ABSCESS RUPTURE [None]
  - RASH [None]
  - THROMBOCYTOPENIA [None]
